FAERS Safety Report 19827328 (Version 1)
Quarter: 2021Q3

REPORT INFORMATION
  Report Type: Spontaneous
  Country: US (occurrence: US)
  Receive Date: 20210914
  Receipt Date: 20210914
  Transmission Date: 20211014
  Serious: Yes (Other)
  Sender: FDA-Public Use
  Company Number: US-GLAXOSMITHKLINE-US2021GSK194624

PATIENT
  Sex: Male

DRUGS (2)
  1. RANITIDINE. [Suspect]
     Active Substance: RANITIDINE
     Indication: ABDOMINAL DISCOMFORT
     Dosage: 150 MG
     Route: 065
     Dates: start: 200608, end: 201910
  2. RANITIDINE. [Suspect]
     Active Substance: RANITIDINE
     Indication: ABDOMINAL DISCOMFORT
     Dosage: 150 MG
     Route: 065
     Dates: start: 200608, end: 201910

REACTIONS (3)
  - Lung neoplasm malignant [Unknown]
  - Oesophageal carcinoma [Unknown]
  - Hepatic cancer [Unknown]
